FAERS Safety Report 16104628 (Version 1)
Quarter: 2019Q1

REPORT INFORMATION
  Report Type: Spontaneous
  Country: US (occurrence: US)
  Receive Date: 20190322
  Receipt Date: 20190322
  Transmission Date: 20190418
  Serious: No
  Sender: FDA-Public Use
  Company Number: US-ENDO PHARMACEUTICALS INC-2018-039898

PATIENT
  Sex: Male

DRUGS (8)
  1. AVEED [Suspect]
     Active Substance: TESTOSTERONE UNDECANOATE
     Dosage: 3 ML, UNKNOWN
     Route: 065
     Dates: start: 2018
  2. LISINOPRIL. [Concomitant]
     Active Substance: LISINOPRIL
     Indication: ESSENTIAL HYPERTENSION
  3. XOPENEX [Concomitant]
     Active Substance: LEVALBUTEROL HYDROCHLORIDE
     Indication: PRODUCT USED FOR UNKNOWN INDICATION
  4. AVEED [Suspect]
     Active Substance: TESTOSTERONE UNDECANOATE
     Dosage: 3 ML, IN 4 WEEKS
     Route: 065
     Dates: start: 2018
  5. AVEED [Suspect]
     Active Substance: TESTOSTERONE UNDECANOATE
     Dosage: 3 ML, ONCE EVERY 10WK
     Route: 065
     Dates: start: 2018
  6. AVEED [Suspect]
     Active Substance: TESTOSTERONE UNDECANOATE
     Indication: TESTICULAR FAILURE
     Dosage: 3 ML, ON DAY ONE
     Route: 065
     Dates: start: 2018
  7. ADVAIR HFA [Concomitant]
     Active Substance: FLUTICASONE PROPIONATE\SALMETEROL XINAFOATE
     Indication: PRODUCT USED FOR UNKNOWN INDICATION
  8. FLUTICASONE PROPIONATE. [Concomitant]
     Active Substance: FLUTICASONE PROPIONATE
     Indication: RHINITIS

REACTIONS (5)
  - Injection site hypoaesthesia [Not Recovered/Not Resolved]
  - Injection site inflammation [Unknown]
  - Swelling [Unknown]
  - Injection site pain [Unknown]
  - Nodule [Not Recovered/Not Resolved]

NARRATIVE: CASE EVENT DATE: 2018
